FAERS Safety Report 10109244 (Version 3)
Quarter: 2014Q3

REPORT INFORMATION
  Report Type: Spontaneous
  Country: IT (occurrence: IT)
  Receive Date: 20140423
  Receipt Date: 20140729
  Transmission Date: 20150326
  Serious: Yes (Hospitalization)
  Sender: FDA-Public Use
  Company Number: IT-ACCORD-023191

PATIENT
  Age: 35 Year
  Sex: Female

DRUGS (3)
  1. RAMIPRIL. [Suspect]
     Active Substance: RAMIPRIL
     Route: 048
     Dates: start: 20130925, end: 20130925
  2. AMLODIPINE [Suspect]
     Active Substance: AMLODIPINE BESYLATE
     Route: 048
     Dates: start: 20130925, end: 20130925
  3. DELTACORTENE [Suspect]
     Active Substance: PREDNISONE
     Dosage: DELTACORTENE ^5 MG TABLETS^10 TABLETS -( BRUNO?FARMACEUTICI S.P.A. )( ATC: H02AB07 )
     Route: 048
     Dates: start: 20130925, end: 20130925

REACTIONS (3)
  - Hypotension [Recovered/Resolved]
  - Intentional self-injury [Unknown]
  - Drug abuse [Unknown]

NARRATIVE: CASE EVENT DATE: 20130925
